FAERS Safety Report 10802038 (Version 1)
Quarter: 2015Q1

REPORT INFORMATION
  Report Type: Report from Study
  Country: US (occurrence: US)
  Receive Date: 20150217
  Receipt Date: 20150217
  Transmission Date: 20150721
  Serious: Yes (Other)
  Sender: FDA-Public Use
  Company Number: US-ASTELLAS-2015US004788

PATIENT

DRUGS (2)
  1. EFATUTAZONE [Suspect]
     Active Substance: EFATUTAZONE
     Indication: NON-SMALL CELL LUNG CANCER
     Dosage: 0.5 MG, TWICE DAILY
     Route: 048
  2. ERLOTINIB [Suspect]
     Active Substance: ERLOTINIB
     Indication: NON-SMALL CELL LUNG CANCER
     Route: 048

REACTIONS (1)
  - Pleural effusion [Unknown]
